FAERS Safety Report 9499641 (Version 1)
Quarter: 2013Q1

REPORT INFORMATION
  Report Type: Spontaneous
  Country: US (occurrence: None)
  Receive Date: 20130118
  Receipt Date: 20130118
  Transmission Date: 20140127
  Serious: No
  Sender: FDA-Public Use
  Company Number: A-US2012-60746

PATIENT
  Age: 53 Year
  Sex: Male

DRUGS (3)
  1. TRACLEER [Suspect]
     Indication: PULMONARY ARTERIAL HYPERTENSION
     Route: 048
     Dates: start: 20090106
  2. ADCIRCA (TADALAFIL) [Concomitant]
  3. DIGOXIN (DIGOXIN) [Concomitant]

REACTIONS (12)
  - Fluid overload [None]
  - Pulmonary arterial hypertension [None]
  - Fluid retention [None]
  - Weight decreased [None]
  - Swelling [None]
  - Dizziness [None]
  - Chest pain [None]
  - Palpitations [None]
  - Disease progression [None]
  - Oedema peripheral [None]
  - Dyspnoea [None]
  - Fatigue [None]
